FAERS Safety Report 24367945 (Version 2)
Quarter: 2024Q4

REPORT INFORMATION
  Report Type: Spontaneous
  Country: US (occurrence: US)
  Receive Date: 20240926
  Receipt Date: 20241007
  Transmission Date: 20250115
  Serious: No
  Sender: MYLAN
  Company Number: US-MYLANLABS-2024M1085063

PATIENT
  Age: 20 Year
  Sex: Female
  Weight: 68.03 kg

DRUGS (1)
  1. XULANE [Suspect]
     Active Substance: ETHINYL ESTRADIOL\NORELGESTROMIN
     Indication: Contraception
     Dosage: 150/35 MICROGRAM, QD
     Route: 062
     Dates: start: 2024

REACTIONS (2)
  - Product adhesion issue [None]
  - Product quality issue [None]

NARRATIVE: CASE EVENT DATE: 20240915
